APPROVED DRUG PRODUCT: PROGESTERONE
Active Ingredient: PROGESTERONE
Strength: 50MG/ML
Dosage Form/Route: INJECTABLE;INJECTION
Application: A090845 | Product #001
Applicant: AMERICAN REGENT INC
Approved: Jun 22, 2009 | RLD: No | RS: No | Type: DISCN